FAERS Safety Report 4326136-1 (Version None)
Quarter: 2004Q1

REPORT INFORMATION
  Report Type: 
  Country: None (occurrence: None)
  Receive Date: 20040324
  Receipt Date: 20040309
  Transmission Date: 20041129
  Serious: Yes (Hospitalization, Other)
  Sender: FDA-Public Use
  Company Number: 230776

PATIENT
  Age: 1 Day
  Sex: Female
  Weight: 4 kg

DRUGS (14)
  1. NOVORAPID PENFILL(INSULIN ASPART) SOLUTION FOR INJECTION, 100U/ML [Suspect]
     Indication: DIABETES MELLITUS INSULIN-DEPENDENT
     Dosage: 20 IU, QD, INTRAUTERINE
     Route: 015
     Dates: start: 20021220
  2. INSULATARD PENFILL HM(GE) 3ML (INSULIN HUMAN) SUSPENSION FOR INJECTION [Concomitant]
  3. ACTRAPID (INSULIN HUMAN) [Concomitant]
  4. FOLIC ACID [Concomitant]
  5. VENTOLIN [Concomitant]
  6. FUCIBET (BETAMETHASONE VALERATE) [Concomitant]
  7. FERROUS SULPHATE (FERROUS SULFATE) [Concomitant]
  8. ACETAMINOPHEN [Concomitant]
  9. SODIUM GENTISATE [Concomitant]
  10. DICLOFENAC SODIUM [Concomitant]
  11. FRAGMIN [Concomitant]
  12. CEFUROXIME [Concomitant]
  13. OXYTOCIN [Concomitant]
  14. EPHEDRINE [Concomitant]

REACTIONS (4)
  - HYPOGLYCAEMIA NEONATAL [None]
  - MATERNAL DRUGS AFFECTING FOETUS [None]
  - NEONATAL TACHYPNOEA [None]
  - VOMITING NEONATAL [None]
